FAERS Safety Report 12587162 (Version 1)
Quarter: 2016Q3

REPORT INFORMATION
  Report Type: Spontaneous
  Country: US (occurrence: US)
  Receive Date: 20160725
  Receipt Date: 20160725
  Transmission Date: 20161109
  Serious: No
  Sender: FDA-Public Use
  Company Number: US-BAYER-2016-137919

PATIENT
  Age: 91 Year
  Sex: Male

DRUGS (1)
  1. ALEVE PM [Suspect]
     Active Substance: DIPHENHYDRAMINE HYDROCHLORIDE\NAPROXEN SODIUM
     Indication: SLEEP DISORDER THERAPY
     Dosage: 1 DF, QD
     Dates: start: 20160706

REACTIONS (4)
  - Product use issue [None]
  - Malaise [None]
  - Decreased appetite [None]
  - Tremor [None]

NARRATIVE: CASE EVENT DATE: 20160706
